FAERS Safety Report 26019331 (Version 1)
Quarter: 2025Q4

REPORT INFORMATION
  Report Type: Spontaneous
  Country: EU (occurrence: EU)
  Receive Date: 20251110
  Receipt Date: 20251110
  Transmission Date: 20260119
  Serious: Yes (Other)
  Sender: LEO PHARM
  Company Number: None

PATIENT
  Sex: Female
  Weight: 56 kg

DRUGS (2)
  1. ADBRY [Suspect]
     Active Substance: TRALOKINUMAB-LDRM
     Indication: Dermatitis atopic
     Dosage: PATIENT UNDERGOING TREATMENT WITH ADTRALZA 300 MG EVERY TWO WEEKS VIA SUBCUTANEOUS ADMINISTRATION. T
     Route: 058
  2. ADBRY [Suspect]
     Active Substance: TRALOKINUMAB-LDRM
     Indication: Dermatitis atopic
     Dosage: PATIENT UNDERGOING TREATMENT WITH ADTRALZA 300 MG EVERY TWO WEEKS VIA SUBCUTANEOUS ADMINISTRATION. T
     Route: 058
     Dates: start: 202507, end: 202507

REACTIONS (1)
  - Pneumonitis [Recovered/Resolved]

NARRATIVE: CASE EVENT DATE: 20250801
